FAERS Safety Report 7530974-1 (Version None)
Quarter: 2011Q2

REPORT INFORMATION
  Report Type: 
  Country: None (occurrence: None)
  Receive Date: 20110608
  Receipt Date: 20110525
  Transmission Date: 20111010
  Serious: Yes (Other)
  Sender: FDA-Public Use
  Company Number: JP-JNJFOC-20110601774

PATIENT
  Age: 61 Year
  Sex: Male

DRUGS (26)
  1. ALLOPURINOL [Concomitant]
     Indication: HYPERURICAEMIA
     Route: 065
  2. LAC B [Concomitant]
     Indication: GASTROINTESTINAL DISORDER
     Route: 065
  3. DOXAZOSIN MESYLATE [Concomitant]
     Indication: HYPERTENSION
     Dosage: 1 DF TWICE A DAY
     Route: 065
  4. NAUZELIN [Concomitant]
     Indication: GASTROINTESTINAL MOTILITY DISORDER
     Dosage: 1 DF TWICE A DAY
     Route: 065
  5. CEPHADOL [Concomitant]
     Indication: DIZZINESS
     Dosage: 1 DF TWICE A DAY
     Route: 065
  6. ASPIRIN [Concomitant]
     Indication: ANTIPLATELET THERAPY
     Route: 065
  7. SHOUSEIRYUUTOU [Concomitant]
     Dosage: 1 DF TWICE A DAY
     Route: 065
  8. ALLEGRA [Concomitant]
     Indication: HYPERSENSITIVITY
     Route: 065
  9. LEBENIN [Concomitant]
     Route: 065
  10. FAMOSTAGINE-D [Concomitant]
     Route: 065
  11. MUCODYNE [Concomitant]
     Dosage: 1 DF TWICE A DAY
     Route: 065
  12. LEVOFLOXACIN [Suspect]
     Indication: OTITIS MEDIA
     Route: 048
     Dates: start: 20110520, end: 20110524
  13. CLARITIN [Concomitant]
     Route: 065
  14. PRODONER [Concomitant]
     Route: 065
  15. TOWATHIEN [Concomitant]
     Dosage: 6 DF
     Route: 065
  16. MECOBALAMIN [Concomitant]
     Indication: NEUROPATHY PERIPHERAL
     Route: 065
  17. NIFEDIPINE [Concomitant]
     Indication: HYPERTENSION
     Dosage: 1 DF TWICE A DAY
     Route: 065
  18. EPADEL S [Concomitant]
     Route: 065
  19. OLMESARTAN MEDOXOMIL [Concomitant]
     Route: 065
  20. CELESTAMINE TAB [Concomitant]
     Dosage: 1 DF TWICE A DAY
     Route: 065
  21. CALCIUM CARBONATE [Concomitant]
     Indication: HYPERPHOSPHATAEMIA
     Dosage: 1 DF TWICE A DAY
     Route: 065
  22. ZITHROMAX [Concomitant]
     Dosage: 2 DF
     Route: 065
  23. CALFINA [Concomitant]
     Route: 065
  24. CONSTAN [Concomitant]
     Route: 065
  25. CARVEDILOL [Concomitant]
     Indication: HYPERTENSION
     Dosage: 1 DF TWICE A DAY
     Route: 065
  26. HERBAL EXTRACTS NOS [Concomitant]
     Route: 065

REACTIONS (6)
  - VOMITING [None]
  - MUSCLE SPASMS [None]
  - INSOMNIA [None]
  - ANXIETY [None]
  - DIZZINESS [None]
  - NAUSEA [None]
